FAERS Safety Report 7966029-1 (Version None)
Quarter: 2011Q4

REPORT INFORMATION
  Report Type: 
  Country: None (occurrence: None)
  Receive Date: 20111208
  Receipt Date: 20111205
  Transmission Date: 20120403
  Serious: Yes (Death, Hospitalization, Other)
  Sender: FDA-Public Use
  Company Number: PT-ROXANE LABORATORIES, INC.-2011-RO-01742RO

PATIENT
  Age: 47 Year
  Sex: Female

DRUGS (5)
  1. AZATHIOPRINE [Suspect]
     Indication: POLYMYOSITIS
  2. VILDAGLIPTIN PLUS METFORMIN [Suspect]
  3. PIOGLITAZONE [Suspect]
  4. LISINOPRIL [Suspect]
  5. FENOFIBRATE [Suspect]

REACTIONS (9)
  - NICOTINAMIDE DECREASED [None]
  - CHEILITIS [None]
  - ALDOLASE INCREASED [None]
  - PANCYTOPENIA [None]
  - NICOTINIC ACID DEFICIENCY [None]
  - BONE MARROW FAILURE [None]
  - BLOOD CREATINE PHOSPHOKINASE INCREASED [None]
  - GLOSSITIS [None]
  - ANTINUCLEAR ANTIBODY POSITIVE [None]
